FAERS Safety Report 7458023-4 (Version None)
Quarter: 2011Q2

REPORT INFORMATION
  Report Type: 
  Country: None (occurrence: None)
  Receive Date: 20110504
  Receipt Date: 20110427
  Transmission Date: 20111010
  Serious: Yes (Hospitalization)
  Sender: FDA-Public Use
  Company Number: JP-ASTRAZENECA-2011SE24888

PATIENT
  Age: 84 Year
  Sex: Female
  Weight: 41 kg

DRUGS (7)
  1. ONON [Concomitant]
     Route: 048
     Dates: end: 20110304
  2. PULMICORT [Concomitant]
     Route: 055
     Dates: end: 20110304
  3. BIO THREE [Concomitant]
     Route: 048
     Dates: end: 20110304
  4. FERROUS CITRATE [Concomitant]
     Route: 048
     Dates: end: 20110304
  5. ECARD LD [Suspect]
     Dosage: 1 DF DAILY
     Route: 048
     Dates: start: 20110219, end: 20110304
  6. ARGAMATE [Concomitant]
     Route: 048
     Dates: end: 20110304
  7. DIGOXIN [Concomitant]
     Route: 048
     Dates: end: 20110304

REACTIONS (3)
  - ABDOMINAL DISCOMFORT [None]
  - LIVER DISORDER [None]
  - MUSCULOSKELETAL PAIN [None]
